FAERS Safety Report 5072287-6 (Version None)
Quarter: 2006Q3

REPORT INFORMATION
  Report Type: 
  Country: None (occurrence: None)
  Receive Date: 20060807
  Receipt Date: 20060724
  Transmission Date: 20061208
  Serious: Yes (Other)
  Sender: FDA-Public Use
  Company Number: US-AMGEN-US187683

PATIENT
  Sex: Female

DRUGS (2)
  1. ENBREL [Suspect]
     Indication: RHEUMATOID ARTHRITIS
     Route: 058
     Dates: start: 19990501, end: 20060101
  2. METHOTREXATE [Concomitant]
     Route: 048
     Dates: start: 19950101, end: 20030301

REACTIONS (2)
  - DRUG INEFFECTIVE [None]
  - TUBERCULOSIS [None]
